FAERS Safety Report 6531000-3 (Version None)
Quarter: 2010Q1

REPORT INFORMATION
  Report Type: 
  Country: None (occurrence: None)
  Receive Date: 20100108
  Receipt Date: 20090924
  Transmission Date: 20100710
  Serious: No
  Sender: FDA-Public Use
  Company Number: A0803100A

PATIENT
  Age: 50 Year
  Sex: Male

DRUGS (2)
  1. LOVAZA [Suspect]
     Indication: BLOOD CHOLESTEROL INCREASED
     Dosage: 2CAP FOUR TIMES PER DAY
     Route: 048
     Dates: start: 20090401
  2. NO CONCURRENT MEDICATION [Concomitant]

REACTIONS (4)
  - ABDOMINAL DISCOMFORT [None]
  - DYSGEUSIA [None]
  - PRODUCT QUALITY ISSUE [None]
  - SKIN ODOUR ABNORMAL [None]
